FAERS Safety Report 6726947 (Version 1)
Quarter: 2020Q3

REPORT INFORMATION
  Report Type: Report from Study
  Country: US (occurrence: US)
  Receive Date: 20080814
  Receipt Date: 20080814
  Transmission Date: 20201104
  Serious: Yes (Other)
  Sender: FDA-Public Use
  Company Number: US-ROCHE-579423

PATIENT
  Age: 76 Year
  Sex: Female
  Weight: 103.4 kg

DRUGS (7)
  1. LOPRESOR [Concomitant]
     Active Substance: METOPROLOL
  2. IBANDRONIC ACID. [Suspect]
     Active Substance: IBANDRONIC ACID
     Indication: OSTEOPOROSIS
     Route: 048
     Dates: start: 200508, end: 200708
  3. ASPIRIN. [Concomitant]
     Active Substance: ASPIRIN
     Dosage: DRUG REPORTED AS BABY ASPIRIN
  4. POTASSIUM [Concomitant]
     Active Substance: POTASSIUM
  5. FEMARA [Concomitant]
     Active Substance: LETROZOLE
  6. AROMASIN [Concomitant]
     Active Substance: EXEMESTANE
  7. LASIX [Concomitant]
     Active Substance: FUROSEMIDE

REACTIONS (1)
  - Metastases to bone [Not Recovered/Not Resolved]

NARRATIVE: CASE EVENT DATE: 20070806
